FAERS Safety Report 8243669-6 (Version None)
Quarter: 2012Q1

REPORT INFORMATION
  Report Type: 
  Country: None (occurrence: None)
  Receive Date: 20120329
  Receipt Date: 20120327
  Transmission Date: 20120608
  Serious: No
  Sender: FDA-Public Use
  Company Number: US-PFIZER INC-2012079258

PATIENT
  Age: 22 Year
  Sex: Male
  Weight: 95.238 kg

DRUGS (1)
  1. IBUPROFEN (ADVIL) [Suspect]
     Dosage: 600 MG, UNK
     Dates: start: 20120327

REACTIONS (3)
  - PRURITUS [None]
  - RASH MACULAR [None]
  - HYPERSENSITIVITY [None]
